FAERS Safety Report 10994985 (Version 6)
Quarter: 2015Q4

REPORT INFORMATION
  Report Type: Spontaneous
  Country: US (occurrence: US)
  Receive Date: 20150407
  Receipt Date: 20151110
  Transmission Date: 20160304
  Serious: Yes (Death, Hospitalization, Other)
  Sender: FDA-Public Use
  Company Number: US-GLAXOSMITHKLINE-US2015GSK045654

PATIENT
  Age: 62 Year
  Sex: Female

DRUGS (6)
  1. FLOLAN [Suspect]
     Active Substance: EPOPROSTENOL SODIUM
     Indication: PULMONARY ARTERIAL HYPERTENSION
     Dosage: 22NG/KG/MIN, CO
     Route: 042
     Dates: start: 20100130
  2. FLOLAN [Suspect]
     Active Substance: EPOPROSTENOL SODIUM
     Indication: PULMONARY HYPERTENSION
     Dosage: 30NG/KG/MIN
     Dates: start: 20100205
  3. FLOLAN [Suspect]
     Active Substance: EPOPROSTENOL SODIUM
     Dosage: 30NG/KG/MIN CONTINUOUS; CONCENTRATION: 45,000 NG/ML; PUMP RATE: 79 ML/DAY; VIAL STRENGTH: 1.5 MG
     Route: 042
     Dates: start: 20100205
  4. ADCIRCA [Concomitant]
     Active Substance: TADALAFIL
  5. TRACLEER [Concomitant]
     Active Substance: BOSENTAN
  6. VELETRI [Concomitant]
     Active Substance: EPOPROSTENOL

REACTIONS (8)
  - Dyspnoea [Unknown]
  - Death [Fatal]
  - Pneumonia [Unknown]
  - Tracheostomy [Unknown]
  - Hypoxia [Unknown]
  - Hospitalisation [Unknown]
  - Living in residential institution [Recovered/Resolved]
  - Oxygen saturation decreased [Unknown]

NARRATIVE: CASE EVENT DATE: 20150119
